FAERS Safety Report 6877675-0 (Version None)
Quarter: 2010Q3

REPORT INFORMATION
  Report Type: 
  Country: None (occurrence: None)
  Receive Date: 20100727
  Receipt Date: 20100602
  Transmission Date: 20110219
  Serious: No
  Sender: FDA-Public Use
  Company Number: US-ABBOTT-10P-163-0649208-00

PATIENT
  Sex: Female
  Weight: 81.72 kg

DRUGS (5)
  1. SYNTHROID [Suspect]
     Indication: THYROID DISORDER
     Route: 048
     Dates: start: 20050101, end: 20091201
  2. SYNTHROID [Suspect]
     Indication: THYROID DISORDER
     Dates: start: 20091201
  3. VICODIN [Concomitant]
     Indication: JOINT DISLOCATION
  4. KADIAN [Concomitant]
     Indication: JOINT DISLOCATION
  5. KLONOPIN [Concomitant]
     Indication: ANXIETY

REACTIONS (4)
  - APHAGIA [None]
  - NAUSEA [None]
  - TREMOR [None]
  - WEIGHT DECREASED [None]
